FAERS Safety Report 6780173-6 (Version None)
Quarter: 2010Q2

REPORT INFORMATION
  Report Type: 
  Country: None (occurrence: None)
  Receive Date: 20100618
  Receipt Date: 20100615
  Transmission Date: 20101027
  Serious: Yes (Disabling, Other)
  Sender: FDA-Public Use
  Company Number: US-ELI_LILLY_AND_COMPANY-US201006004408

PATIENT
  Sex: Female

DRUGS (5)
  1. HUMALOG [Suspect]
     Indication: DIABETES MELLITUS
     Dosage: UNK, AS NEEDED
  2. HUMALOG [Suspect]
     Dosage: 8 U, EACH MORNING
  3. HUMALOG [Suspect]
     Dosage: 8 U, EACH EVENING
  4. HUMULIN N [Suspect]
     Indication: DIABETES MELLITUS
     Dosage: 55 U, EACH MORNING
  5. HUMULIN N [Suspect]
     Dosage: 55 U, EACH EVENING

REACTIONS (5)
  - BLINDNESS UNILATERAL [None]
  - BLOOD GLUCOSE INCREASED [None]
  - INCORRECT DOSE ADMINISTERED [None]
  - MACULAR DEGENERATION [None]
  - VISUAL ACUITY REDUCED [None]
